FAERS Safety Report 8385300 (Version 2)
Quarter: 2015Q3

REPORT INFORMATION
  Report Type: Report from Study
  Country: US (occurrence: US)
  Receive Date: 20120202
  Receipt Date: 20150702
  Transmission Date: 20151125
  Serious: Yes (Death, Hospitalization)
  Sender: FDA-Public Use
  Company Number: US-ROCHE-1035152

PATIENT
  Age: 82 Year
  Sex: Female
  Weight: 59.61 kg

DRUGS (26)
  1. RITUXAN [Suspect]
     Active Substance: RITUXIMAB
     Route: 042
  2. TYLENOL #1 (UNITED STATES) [Concomitant]
     Route: 042
  3. RITUXAN [Suspect]
     Active Substance: RITUXIMAB
     Indication: AUTOIMMUNE HAEMOLYTIC ANAEMIA
     Route: 042
     Dates: start: 20061207
  4. STARLIX [Concomitant]
     Active Substance: NATEGLINIDE
     Route: 048
  5. ACTONEL [Concomitant]
     Active Substance: RISEDRONATE SODIUM
     Route: 048
     Dates: start: 20061207
  6. ATENOLOL. [Concomitant]
     Active Substance: ATENOLOL
     Route: 065
  7. ATIVAN [Concomitant]
     Active Substance: LORAZEPAM
     Dosage: P.R.N
     Route: 065
  8. ATENOLOL. [Concomitant]
     Active Substance: ATENOLOL
     Route: 048
     Dates: start: 20061207
  9. GLIPIZIDE. [Concomitant]
     Active Substance: GLIPIZIDE
     Route: 048
     Dates: start: 20070102
  10. PROTONIX (UNITED STATES) [Concomitant]
     Route: 048
     Dates: start: 20070102
  11. LASIX [Concomitant]
     Active Substance: FUROSEMIDE
     Route: 065
  12. SENOKOT [Concomitant]
     Active Substance: SENNOSIDES
     Indication: DIARRHOEA
  13. PREDNISONE. [Suspect]
     Active Substance: PREDNISONE
     Indication: PRODUCT USED FOR UNKNOWN INDICATION
     Route: 048
     Dates: start: 20061207
  14. COUMADINE [Concomitant]
     Active Substance: WARFARIN SODIUM
     Route: 048
     Dates: start: 20070102
  15. KLOR-CON [Concomitant]
     Active Substance: POTASSIUM CHLORIDE
     Route: 048
  16. ALDACTONE (UNITED STATES) [Concomitant]
  17. BENADRYL [Concomitant]
     Active Substance: DIPHENHYDRAMINE HYDROCHLORIDE
     Route: 042
  18. VITAMIN K [Concomitant]
     Active Substance: PHYTONADIONE
     Route: 058
  19. PREDNISONE. [Suspect]
     Active Substance: PREDNISONE
     Route: 065
  20. PREDNISONE. [Suspect]
     Active Substance: PREDNISONE
     Route: 048
  21. FOLIC ACID. [Concomitant]
     Active Substance: FOLIC ACID
     Route: 048
     Dates: start: 20061207
  22. EVISTA [Concomitant]
     Active Substance: RALOXIFENE HYDROCHLORIDE
     Route: 048
     Dates: start: 20061207
  23. SPIRONOLACTONE. [Concomitant]
     Active Substance: SPIRONOLACTONE
     Route: 048
     Dates: start: 20070102
  24. COUMADINE [Concomitant]
     Active Substance: WARFARIN SODIUM
     Route: 065
  25. ZYRTEC [Concomitant]
     Active Substance: CETIRIZINE HYDROCHLORIDE
     Route: 048
  26. NORVASC [Concomitant]
     Active Substance: AMLODIPINE BESYLATE

REACTIONS (19)
  - Hepatic failure [Fatal]
  - Cardiac failure congestive [Fatal]
  - Hypokalaemia [Unknown]
  - Sepsis [Fatal]
  - Pancytopenia [Fatal]
  - Hypotension [Fatal]
  - Fluid retention [Unknown]
  - Cellulitis [Unknown]
  - Blood glucose increased [Unknown]
  - Constipation [Unknown]
  - Oedema peripheral [Unknown]
  - Neutropenia [Recovered/Resolved]
  - Joint swelling [Unknown]
  - Diarrhoea [Unknown]
  - Hyponatraemia [Unknown]
  - Renal failure [Fatal]
  - Leukopenia [Unknown]
  - Asthenia [Unknown]
  - Off label use [Unknown]

NARRATIVE: CASE EVENT DATE: 20061214
